FAERS Safety Report 18178143 (Version 7)
Quarter: 2021Q4

REPORT INFORMATION
  Report Type: Report from Study
  Country: US (occurrence: US)
  Receive Date: 20200820
  Receipt Date: 20211116
  Transmission Date: 20220304
  Serious: Yes (Hospitalization)
  Sender: FDA-Public Use
  Company Number: US-TAIHO ONCOLOGY INC-EU-2020-02954

PATIENT
  Age: 69 Year
  Sex: Female
  Weight: 56.8 kg

DRUGS (3)
  1. TIPIRACIL HYDROCHLORIDE\TRIFLURIDINE [Suspect]
     Active Substance: TIPIRACIL HYDROCHLORIDE\TRIFLURIDINE
     Indication: Ductal adenocarcinoma of pancreas
     Dosage: CYCLE 1?DOSE INTERRUPTED ON 10/AUG/2020 AND RESTARTED ON 25/AUG/2020.
     Route: 048
     Dates: start: 20200727
  2. GEMCITABINE [Suspect]
     Active Substance: GEMCITABINE
     Indication: Ductal adenocarcinoma of pancreas
     Dosage: CYCLE 1?DOSE INTERRUPTED ON 10/AUG/2020 AND RESTARTED ON 25/AUG/2020.
     Route: 042
     Dates: start: 20200727
  3. PACLITAXEL [Suspect]
     Active Substance: PACLITAXEL
     Indication: Adenocarcinoma pancreas
     Dosage: CYCLE 1?DOSE INTERRUPTED ON 10/AUG/2020 AND RESTARTED ON 25/AUG/2020.
     Route: 042
     Dates: start: 20200727

REACTIONS (1)
  - Biliary obstruction [Recovered/Resolved]

NARRATIVE: CASE EVENT DATE: 20200813
